FAERS Safety Report 7707097 (Version 4)
Quarter: 2014Q2

REPORT INFORMATION
  Report Type: Report from Study
  Country: JP (occurrence: JP)
  Receive Date: 20101214
  Receipt Date: 20140409
  Transmission Date: 20141212
  Serious: Yes (Death, Other)
  Sender: FDA-Public Use
  Company Number: JP-ROCHE-747251

PATIENT
  Sex: 0

DRUGS (9)
  1. RITUXIMAB [Suspect]
     Indication: LIVER TRANSPLANT
     Route: 065
  2. MYCOPHENOLATE MOFETIL [Suspect]
     Indication: PROPHYLAXIS AGAINST TRANSPLANT REJECTION
     Dosage: B/W 12 AND 15 NG/ML FOR THE 1ST POST-LDLT MONTH + 8 TO 10 NG/ML FOR NEXT FEW MONTHS
     Route: 065
  3. IMMUNE GLOBULIN INTRAMUSCULAR [Suspect]
     Indication: PROPHYLAXIS AGAINST TRANSPLANT REJECTION
     Dosage: 0.6 G/KG/DAY
     Route: 042
  4. TACROLIMUS [Suspect]
     Indication: PROPHYLAXIS AGAINST TRANSPLANT REJECTION
     Route: 065
  5. CYCLOSPORINE A [Suspect]
     Indication: PROPHYLAXIS AGAINST TRANSPLANT REJECTION
     Dosage: RANGES FROM 200 TO 250 NG/ML FOR THE 1ST POST-LDLT MONTH AND 100 TO 150 NG/ML NEXT FEW MONTHS
     Route: 065
  6. METHYLPREDNISOLONE [Suspect]
     Indication: PROPHYLAXIS AGAINST TRANSPLANT REJECTION
     Dosage: 1G GIVEN AFTER REPERFUSION AND TAPERED FROM 200 MG TO 40 MG OVER 10 DAYS,
     Route: 065
  7. PREDNISOLONE [Suspect]
     Indication: PROPHYLAXIS AGAINST TRANSPLANT REJECTION
     Dosage: TAPERED OFF IN 6 MONTHS AFTER LDLT
     Route: 048
  8. PROSTAGLANDIN E [Concomitant]
  9. NAFAMOSTAT MESILATE [Concomitant]

REACTIONS (7)
  - Portal vein thrombosis [Fatal]
  - Aspergillus infection [Fatal]
  - Transplant rejection [Unknown]
  - Sepsis [Unknown]
  - Cytomegalovirus infection [Unknown]
  - Transplant rejection [Unknown]
  - Hepatitis C [Not Recovered/Not Resolved]
